FAERS Safety Report 4338665-5 (Version None)
Quarter: 2004Q2

REPORT INFORMATION
  Report Type: 
  Country: None (occurrence: None)
  Receive Date: 20040409
  Receipt Date: 20040401
  Transmission Date: 20050107
  Serious: No
  Sender: FDA-Public Use
  Company Number: 2004UW06521

PATIENT
  Age: 71 Year
  Sex: Male
  Weight: 99.7913 kg

DRUGS (12)
  1. SEROQUEL [Suspect]
     Indication: ANXIETY
     Dosage: 100 MG QID PO
     Route: 048
  2. SEROQUEL [Suspect]
     Indication: DEPRESSION
     Dosage: 100 MG QID PO
     Route: 048
  3. SEROQUEL [Suspect]
     Indication: ANXIETY
     Dosage: 200 MG HS PO
     Route: 048
  4. SEROQUEL [Suspect]
     Indication: DEPRESSION
     Dosage: 200 MG HS PO
     Route: 048
  5. ZOLOFT [Concomitant]
  6. LIPITOR [Concomitant]
  7. HYDROCHLOROTHIAZIDE [Concomitant]
  8. PROZAC [Concomitant]
  9. PRILOSEC [Concomitant]
  10. CELEBREX [Concomitant]
  11. LEVAQUIN [Concomitant]
  12. ALBUTEROL [Concomitant]

REACTIONS (1)
  - DIAPHRAGMATIC PARALYSIS [None]
